FAERS Safety Report 9297037 (Version 1)
Quarter: 2013Q2

REPORT INFORMATION
  Report Type: Spontaneous
  Country: US (occurrence: US)
  Receive Date: 20130519
  Receipt Date: 20130519
  Transmission Date: 20140414
  Serious: No
  Sender: FDA-Public Use
  Company Number: US-ALLERGAN-1302251US

PATIENT
  Age: 42 Year
  Sex: Female

DRUGS (3)
  1. LASTACAFT [Suspect]
     Indication: EYE ALLERGY
     Dosage: 2 GTT, SINGLE
     Route: 047
     Dates: start: 20130211, end: 20130211
  2. LASTACAFT [Suspect]
     Dosage: UNK
     Route: 047
     Dates: start: 201204
  3. VISINE                             /00256502/ [Concomitant]
     Indication: PRODUCT USED FOR UNKNOWN INDICATION
     Dosage: UNK UNK, PRN
     Route: 047

REACTIONS (4)
  - Conjunctivitis [Unknown]
  - Eyelid margin crusting [Recovering/Resolving]
  - Eye irritation [Recovering/Resolving]
  - Scleral hyperaemia [Recovering/Resolving]
